FAERS Safety Report 14173817 (Version 1)
Quarter: 2017Q4

REPORT INFORMATION
  Report Type: Spontaneous
  Country: US (occurrence: US)
  Receive Date: 20171107
  Receipt Date: 20171107
  Transmission Date: 20180321
  Serious: Yes (Other)
  Sender: FDA-Public Use
  Company Number: None

PATIENT
  Age: 83 Year
  Sex: Male
  Weight: 76 kg

DRUGS (1)
  1. ZYTIGA [Suspect]
     Active Substance: ABIRATERONE ACETATE
     Indication: PROSTATE CANCER
     Route: 048
     Dates: start: 20170830, end: 20171011

REACTIONS (7)
  - Fatigue [None]
  - Dizziness [None]
  - Jaundice [None]
  - Blood glucose increased [None]
  - Cholelithiasis [None]
  - Decreased appetite [None]
  - Hyperbilirubinaemia [None]
